FAERS Safety Report 21109740 (Version 1)
Quarter: 2022Q3

REPORT INFORMATION
  Report Type: Spontaneous
  Country: US (occurrence: US)
  Receive Date: 20220721
  Receipt Date: 20220721
  Transmission Date: 20221027
  Serious: No
  Sender: FDA-Public Use
  Company Number: US-GSK-US2022AMR107210

PATIENT
  Sex: Female

DRUGS (1)
  1. ALBUTEROL SULFATE [Suspect]
     Active Substance: ALBUTEROL SULFATE
     Indication: Product used for unknown indication
     Dosage: UNK 90 MCG 18G/200 METERED

REACTIONS (4)
  - COVID-19 [Unknown]
  - Wrong technique in device usage process [Unknown]
  - Product storage error [Unknown]
  - Wrong technique in product usage process [Unknown]
